FAERS Safety Report 9605078 (Version 2)
Quarter: 2013Q4

REPORT INFORMATION
  Report Type: Spontaneous
  Country: GB (occurrence: GB)
  Receive Date: 20131008
  Receipt Date: 20131008
  Transmission Date: 20140711
  Serious: Yes (Other)
  Sender: FDA-Public Use
  Company Number: GB-TEVA-381417ISR

PATIENT
  Age: 74 Year
  Sex: Female
  Weight: 83 kg

DRUGS (6)
  1. TRIMETHOPRIM [Suspect]
     Indication: KIDNEY INFECTION
     Dosage: 400 MILLIGRAM DAILY;
     Route: 048
     Dates: start: 20120221, end: 20120228
  2. FOLIC ACID [Suspect]
     Indication: RHEUMATOID ARTHRITIS
     Route: 048
     Dates: start: 201006, end: 201202
  3. METHOTREXATE [Interacting]
     Indication: RHEUMATOID ARTHRITIS
     Route: 048
     Dates: start: 201006, end: 201202
  4. CIMZIA [Concomitant]
  5. FISH OIL [Concomitant]
  6. ROACTEMRA [Concomitant]
     Dosage: RECEIVED 2 INFUSIONS

REACTIONS (1)
  - Drug interaction [Recovered/Resolved]
